FAERS Safety Report 13783419 (Version 4)
Quarter: 2018Q2

REPORT INFORMATION
  Report Type: Spontaneous
  Country: GR (occurrence: GR)
  Receive Date: 20170724
  Receipt Date: 20180604
  Transmission Date: 20180711
  Serious: Yes (Hospitalization)
  Sender: FDA-Public Use
  Company Number: GR-JNJFOC-20170717481

PATIENT
  Age: 80 Year
  Sex: Female
  Weight: 67.3 kg

DRUGS (7)
  1. ADENOSINE. [Suspect]
     Active Substance: ADENOSINE
     Indication: CARDIAC FAILURE CHRONIC
     Route: 048
     Dates: start: 20170720
  2. XARELTO [Suspect]
     Active Substance: RIVAROXABAN
     Indication: ATRIAL FIBRILLATION
     Route: 048
     Dates: start: 20170511, end: 20170710
  3. ADENOSINE. [Suspect]
     Active Substance: ADENOSINE
     Indication: CARDIAC FAILURE CHRONIC
     Route: 048
     Dates: start: 20170626, end: 20170707
  4. IRON W/VITAMIN C [Concomitant]
     Indication: IRON DEFICIENCY ANAEMIA
     Route: 048
     Dates: start: 201611
  5. ADENOSINE. [Suspect]
     Active Substance: ADENOSINE
     Indication: CARDIAC FAILURE CHRONIC
     Route: 048
     Dates: start: 20170502, end: 20170624
  6. ADENOSINE. [Suspect]
     Active Substance: ADENOSINE
     Indication: CARDIAC FAILURE CHRONIC
     Route: 048
     Dates: start: 20170710, end: 20170717
  7. SINTROM [Concomitant]
     Active Substance: ACENOCOUMAROL
     Indication: ATRIAL FIBRILLATION
     Route: 065
     Dates: start: 20170711, end: 20170726

REACTIONS (1)
  - Anaemia [Recovered/Resolved]

NARRATIVE: CASE EVENT DATE: 20170711
